FAERS Safety Report 18629542 (Version 1)
Quarter: 2020Q4

REPORT INFORMATION
  Report Type: Spontaneous
  Country: NL (occurrence: NL)
  Receive Date: 20201217
  Receipt Date: 20201217
  Transmission Date: 20210114
  Serious: Yes (Other)
  Sender: FDA-Public Use
  Company Number: NL-MYLANLABS-2020M1101525

PATIENT

DRUGS (4)
  1. CISPLATIN\PACLITAXEL [Suspect]
     Active Substance: CISPLATIN\PACLITAXEL
     Indication: NEUROENDOCRINE CARCINOMA
     Dosage: UNK
     Route: 065
     Dates: start: 2019, end: 2020
  2. ETOPOSIDE. [Suspect]
     Active Substance: ETOPOSIDE
     Indication: NEUROENDOCRINE CARCINOMA
     Dosage: UNK
     Route: 065
     Dates: start: 2020
  3. EVEROLIMUS. [Suspect]
     Active Substance: EVEROLIMUS
     Indication: NEUROENDOCRINE CARCINOMA
     Dosage: UNK
     Route: 065
     Dates: start: 2019, end: 2020
  4. CARBOPLATIN. [Suspect]
     Active Substance: CARBOPLATIN
     Indication: NEUROENDOCRINE CARCINOMA
     Dosage: UNK
     Route: 065
     Dates: start: 2020

REACTIONS (3)
  - Metastases to lymph nodes [Unknown]
  - Metastases to pancreas [Recovering/Resolving]
  - Metastases to liver [Unknown]
